FAERS Safety Report 15922756 (Version 2)
Quarter: 2019Q1

REPORT INFORMATION
  Report Type: Spontaneous
  Country: US (occurrence: US)
  Receive Date: 20190205
  Receipt Date: 20190219
  Transmission Date: 20190417
  Serious: No
  Sender: FDA-Public Use
  Company Number: US-ALLERGAN-1808607US

PATIENT
  Age: 38 Year
  Sex: Female
  Weight: 58.5 kg

DRUGS (2)
  1. SECUKINUMAB. [Concomitant]
     Active Substance: SECUKINUMAB
     Indication: PSORIASIS
     Dosage: UNK
     Route: 065
  2. BOTOX COSMETIC [Suspect]
     Active Substance: ONABOTULINUMTOXINA
     Indication: SKIN WRINKLING
     Dosage: 9 UNITS WERE INJECTED TO THE FRONTALIS AND 10 UNITS WERE DIVIDED AMONG CROWS FEET
     Route: 030
     Dates: start: 20180210, end: 20180210

REACTIONS (7)
  - Eye swelling [Not Recovered/Not Resolved]
  - Pregnancy [Unknown]
  - Injection site pain [Not Recovered/Not Resolved]
  - Injection site erythema [Not Recovered/Not Resolved]
  - Injection site swelling [Not Recovered/Not Resolved]
  - Hypersensitivity [Not Recovered/Not Resolved]
  - Injection site pruritus [Not Recovered/Not Resolved]

NARRATIVE: CASE EVENT DATE: 20180210
